FAERS Safety Report 24916242 (Version 1)
Quarter: 2025Q1

REPORT INFORMATION
  Report Type: Spontaneous
  Country: US (occurrence: None)
  Receive Date: 20250131
  Receipt Date: 20250131
  Transmission Date: 20250408
  Serious: Yes (Death)
  Sender: FDA-CTU
  Company Number: None

PATIENT
  Age: 28 Year
  Sex: Female

DRUGS (10)
  1. AJOVY [Suspect]
     Active Substance: FREMANEZUMAB-VFRM
     Indication: Migraine
     Route: 058
     Dates: start: 20231107, end: 20240110
  2. PERPHENAZINE [Concomitant]
     Active Substance: PERPHENAZINE
  3. RISPERIDONE [Concomitant]
     Active Substance: RISPERIDONE
  4. ABILIFY [Concomitant]
     Active Substance: ARIPIPRAZOLE
  5. ALPRAZOLAM [Concomitant]
     Active Substance: ALPRAZOLAM
  6. GABAPENTI N [Concomitant]
  7. LEVOTHYROXINE [Concomitant]
     Active Substance: LEVOTHYROXINE
  8. PRAZOSIN [Concomitant]
     Active Substance: PRAZOSIN
  9. SUMATRIPTAN [Concomitant]
     Active Substance: SUMATRIPTAN
  10. TOPAMAX [Concomitant]
     Active Substance: TOPIRAMATE

REACTIONS (1)
  - Death [None]

NARRATIVE: CASE EVENT DATE: 20250120
